FAERS Safety Report 10166929 (Version 1)
Quarter: 2014Q2

REPORT INFORMATION
  Report Type: Spontaneous
  Country: US (occurrence: None)
  Receive Date: 20140509
  Receipt Date: 20140509
  Transmission Date: 20141212
  Serious: Yes (Disabling)
  Sender: FDA-Public Use
  Company Number: None

PATIENT
  Age: 63 Year
  Sex: Male

DRUGS (1)
  1. SIMVASTATIN [Suspect]
     Indication: BLOOD CHOLESTEROL
     Route: 048

REACTIONS (11)
  - Pain in extremity [None]
  - Hypoaesthesia [None]
  - Pain in extremity [None]
  - Asthenia [None]
  - Fatigue [None]
  - Neuropathy peripheral [None]
  - Arthralgia [None]
  - Muscle injury [None]
  - Balance disorder [None]
  - Drug effect decreased [None]
  - Muscle atrophy [None]
